FAERS Safety Report 7343773-0 (Version None)
Quarter: 2011Q1

REPORT INFORMATION
  Report Type: 
  Country: None (occurrence: None)
  Receive Date: 20110308
  Receipt Date: 20110308
  Transmission Date: 20110831
  Serious: Yes (Other)
  Sender: FDA-Public Use
  Company Number: None

PATIENT
  Age: 83 Year
  Sex: Female
  Weight: 88.905 kg

DRUGS (1)
  1. LEVAQUIN [Suspect]
     Indication: URINARY TRACT INFECTION
     Dosage: 1 TABLET DAILY PO
     Route: 048
     Dates: start: 20110228, end: 20110301

REACTIONS (2)
  - PAIN IN EXTREMITY [None]
  - POOR QUALITY SLEEP [None]
